FAERS Safety Report 12611113 (Version 1)
Quarter: 2016Q3

REPORT INFORMATION
  Report Type: Spontaneous
  Country: US (occurrence: US)
  Receive Date: 20160801
  Receipt Date: 20160801
  Transmission Date: 20161109
  Serious: No
  Sender: FDA-Public Use
  Company Number: US-FERRINGPH-2015FE04965

PATIENT
  Age: 46 Year
  Sex: Female
  Weight: 81.18 kg

DRUGS (2)
  1. ENDOMETRIN [Suspect]
     Active Substance: PROGESTERONE
     Indication: PREGNANCY
     Dosage: 1 TABLET THREE TIMES A DAY
     Route: 067
     Dates: start: 20151217, end: 20151221
  2. PROGESTERONE. [Concomitant]
     Active Substance: PROGESTERONE

REACTIONS (3)
  - Vulvovaginal discomfort [Recovered/Resolved]
  - Vaginal haemorrhage [Recovered/Resolved]
  - Vaginal discharge [Recovered/Resolved]

NARRATIVE: CASE EVENT DATE: 20151217
